FAERS Safety Report 22191073 (Version 1)
Quarter: 2023Q2

REPORT INFORMATION
  Report Type: Spontaneous
  Country: US (occurrence: None)
  Receive Date: 20230407
  Receipt Date: 20230407
  Transmission Date: 20230721
  Serious: No
  Sender: FDA-Public Use
  Company Number: None

PATIENT
  Age: 73 Year
  Sex: Male

DRUGS (2)
  1. TEMOZOLOMIDE [Suspect]
     Active Substance: TEMOZOLOMIDE
     Indication: Neoplasm malignant
     Dosage: OTHER QUANTITY : 1 CAPSULE;?FREQUENCY : DAILY;?
     Route: 048
     Dates: start: 20230324
  2. TEMOZOLOMIDE [Suspect]
     Active Substance: TEMOZOLOMIDE
     Indication: Neoplasm malignant
     Dosage: OTHER QUANTITY : 1 CAPSULE;?FREQUENCY : DAILY;?
     Route: 048
     Dates: start: 20230324

REACTIONS (1)
  - Constipation [None]

NARRATIVE: CASE EVENT DATE: 20230327
